FAERS Safety Report 4734426-3 (Version None)
Quarter: 2005Q3

REPORT INFORMATION
  Report Type: 
  Country: None (occurrence: None)
  Receive Date: 20050804
  Receipt Date: 20050704
  Transmission Date: 20060218
  Serious: Yes (Life-Threatening, Hospitalization)
  Sender: FDA-Public Use
  Company Number: IT-BRISTOL-MYERS SQUIBB COMPANY-13023395

PATIENT
  Age: 49 Year
  Sex: Male

DRUGS (7)
  1. COUMADIN [Suspect]
     Indication: ATRIAL FIBRILLATION
     Route: 048
     Dates: start: 20050616
  2. RYTHMOL [Suspect]
     Indication: ATRIAL FIBRILLATION
     Route: 048
     Dates: start: 20050615, end: 20050620
  3. TENORMIN [Suspect]
     Indication: ATRIAL FIBRILLATION
     Route: 048
     Dates: start: 20050615
  4. PANTORC [Concomitant]
     Dates: start: 20050617, end: 20050628
  5. ESAPENT [Concomitant]
     Dates: start: 20050616, end: 20050628
  6. DELTACORTENE [Concomitant]
     Route: 048
     Dates: start: 20050616, end: 20050619
  7. REACTINE [Concomitant]
     Dosage: DOSAGE = 5 MG / 120 MG
     Route: 048
     Dates: start: 20050616, end: 20050619

REACTIONS (1)
  - CARDIAC ARREST [None]
